FAERS Safety Report 6356956-3 (Version None)
Quarter: 2009Q3

REPORT INFORMATION
  Report Type: 
  Country: None (occurrence: None)
  Receive Date: 20090915
  Receipt Date: 20090904
  Transmission Date: 20100115
  Serious: Yes (Hospitalization)
  Sender: FDA-Public Use
  Company Number: DE-ROCHE-656231

PATIENT
  Sex: Male
  Weight: 83.9 kg

DRUGS (2)
  1. CAPECITABINE [Suspect]
     Route: 048
     Dates: start: 20090629, end: 20090711
  2. OXALIPLATIN [Concomitant]
     Dosage: GIVEN ON 28 JUN 2009 AND 6 JUL 2009
     Route: 042
     Dates: start: 20090628, end: 20090706

REACTIONS (3)
  - DIARRHOEA [None]
  - HYPOKALAEMIA [None]
  - INFLAMMATION [None]
